FAERS Safety Report 15867795 (Version 1)
Quarter: 2019Q1

REPORT INFORMATION
  Report Type: Spontaneous
  Country: US (occurrence: US)
  Receive Date: 20190102
  Receipt Date: 20190102
  Transmission Date: 20190417
  Serious: No
  Sender: FDA-Public Use
  Company Number: None

PATIENT
  Age: 63 Year
  Sex: Female
  Weight: 56.7 kg

DRUGS (15)
  1. METFORMIN [Concomitant]
     Active Substance: METFORMIN HYDROCHLORIDE
  2. CALCIUM CARBONATE. [Concomitant]
     Active Substance: CALCIUM CARBONATE
  3. TRAMADOL. [Concomitant]
     Active Substance: TRAMADOL
  4. RESTTASIS [Concomitant]
  5. SEA CUMBER (CHONDROITIN) [Concomitant]
  6. FISH + BORAGE OILS [Concomitant]
  7. BITTER MELON [Concomitant]
  8. OMPERAZOL [Concomitant]
  9. EYE VITES [Concomitant]
  10. TRULICITY [Suspect]
     Active Substance: DULAGLUTIDE
     Indication: TYPE 2 DIABETES MELLITUS
     Dosage: ?          QUANTITY:0.75 MG MILLIGRAM(S);?
     Route: 058
     Dates: start: 20181108, end: 20181115
  11. PROVIGIL [Concomitant]
     Active Substance: MODAFINIL
  12. PREDNISONE. [Concomitant]
     Active Substance: PREDNISONE
  13. EFA - FLAXSEED [Concomitant]
  14. SYNTHROID [Concomitant]
     Active Substance: LEVOTHYROXINE SODIUM
  15. VITAMIN D [Concomitant]
     Active Substance: CHOLECALCIFEROL

REACTIONS (7)
  - Tongue ulceration [None]
  - Gastritis [None]
  - Nausea [None]
  - Pharyngeal ulceration [None]
  - Temporomandibular joint syndrome [None]
  - Fatigue [None]
  - Abdominal pain [None]

NARRATIVE: CASE EVENT DATE: 20181109
